FAERS Safety Report 23880597 (Version 1)
Quarter: 2024Q2

REPORT INFORMATION
  Report Type: Spontaneous
  Country: US (occurrence: US)
  Receive Date: 20240521
  Receipt Date: 20240521
  Transmission Date: 20240715
  Serious: No
  Sender: FDA-Public Use
  Company Number: US-HORIZON THERAPEUTICS-HZN-2023-010819

PATIENT

DRUGS (3)
  1. RAYOS [Suspect]
     Active Substance: PREDNISONE
     Indication: Adrenal insufficiency
     Dosage: 6 MG, 19 TABLETS
     Route: 048
     Dates: start: 20231107
  2. RAYOS [Suspect]
     Active Substance: PREDNISONE
     Dosage: 2 TABLETS
     Route: 065
  3. RAYOS [Suspect]
     Active Substance: PREDNISONE
     Dosage: 6 MG, QD
     Route: 048
     Dates: end: 20231127

REACTIONS (7)
  - Expired product administered [Unknown]
  - Pollakiuria [Unknown]
  - Dry mouth [Unknown]
  - Asthenia [Unknown]
  - Crying [Unknown]
  - Bedridden [Unknown]
  - Off label use [Unknown]
